FAERS Safety Report 21337736 (Version 1)
Quarter: 2022Q3

REPORT INFORMATION
  Report Type: Spontaneous
  Country: US (occurrence: None)
  Receive Date: 20220915
  Receipt Date: 20220915
  Transmission Date: 20221027
  Serious: No
  Sender: FDA-Public Use
  Company Number: None

PATIENT
  Age: 69 Year
  Sex: Female
  Weight: 55.38 kg

DRUGS (9)
  1. EVEROLIMUS [Suspect]
     Active Substance: EVEROLIMUS
     Indication: Carcinoid tumour of the small bowel
     Dosage: FREQUENCY : DAILY;?
     Route: 048
     Dates: start: 20211209
  2. DEXAMETHASONE [Concomitant]
     Active Substance: DEXAMETHASONE
  3. INVOKANA [Concomitant]
     Active Substance: CANAGLIFLOZIN
  4. LIPITOR [Concomitant]
     Active Substance: ATORVASTATIN CALCIUM
  5. MINERALS\VITAMINS [Concomitant]
     Active Substance: MINERALS\VITAMINS
  6. PROBIOTICS NOS [Concomitant]
     Active Substance: PROBIOTICS NOS
  7. SANDOSTATIN [Concomitant]
     Active Substance: OCTREOTIDE ACETATE
  8. TRESIBA [Concomitant]
     Active Substance: INSULIN DEGLUDEC
  9. VALSARTAN [Concomitant]
     Active Substance: VALSARTAN

REACTIONS (1)
  - COVID-19 [None]
